FAERS Safety Report 11793832 (Version 1)
Quarter: 2015Q4

REPORT INFORMATION
  Report Type: Spontaneous
  Country: US (occurrence: None)
  Receive Date: 20151201
  Receipt Date: 20151201
  Transmission Date: 20160305
  Serious: Yes (Other)
  Sender: FDA-Public Use
  Company Number: None

PATIENT
  Age: 14 Year
  Sex: Female
  Weight: 56.7 kg

DRUGS (2)
  1. ISOTRETINOIN [Concomitant]
     Active Substance: ISOTRETINOIN
  2. TRINESSA [Suspect]
     Active Substance: ETHINYL ESTRADIOL\NORGESTIMATE
     Indication: PRODUCT USED FOR UNKNOWN INDICATION
     Dosage: 1 PILL PER DAY AT SAME TIME
     Route: 048
     Dates: start: 20141024, end: 20150807

REACTIONS (2)
  - Low density lipoprotein increased [None]
  - Blood cholesterol increased [None]

NARRATIVE: CASE EVENT DATE: 20141024
